FAERS Safety Report 13479331 (Version 2)
Quarter: 2017Q2

REPORT INFORMATION
  Report Type: Spontaneous
  Country: US (occurrence: US)
  Receive Date: 20170425
  Receipt Date: 20170531
  Transmission Date: 20170830
  Serious: Yes (Other)
  Sender: FDA-Public Use
  Company Number: US-EMD SERONO-8154590

PATIENT
  Sex: Male
  Weight: 52 kg

DRUGS (5)
  1. REMERON [Concomitant]
     Active Substance: MIRTAZAPINE
     Indication: PRODUCT USED FOR UNKNOWN INDICATION
     Dosage: BEFORE BED TIME FOR 30 DAYS
     Route: 048
     Dates: start: 20170426
  2. EPZICOM [Concomitant]
     Active Substance: ABACAVIR SULFATE\LAMIVUDINE
     Indication: HIV INFECTION
     Dosage: 300 TO 600 MILLIGRAM TABLET FOR 30 DAYS
     Route: 048
     Dates: start: 20170426
  3. SEROSTIM [Suspect]
     Active Substance: SOMATROPIN
     Indication: PRODUCT USED FOR UNKNOWN INDICATION
     Route: 058
     Dates: start: 20160705, end: 20161028
  4. EVOTAZ [Concomitant]
     Active Substance: ATAZANAVIR SULFATE\COBICISTAT
     Indication: HIV INFECTION
     Dosage: 300 TO 150 MILLIGRAM TABLET FOR 30 DAYS
     Route: 048
     Dates: start: 20170426
  5. SEROSTIM [Suspect]
     Active Substance: SOMATROPIN
     Route: 058
     Dates: start: 20170127

REACTIONS (1)
  - Mastitis [Recovered/Resolved]
